FAERS Safety Report 18843057 (Version 1)
Quarter: 2021Q1

REPORT INFORMATION
  Report Type: Report from Study
  Country: US (occurrence: US)
  Receive Date: 20210203
  Receipt Date: 20210203
  Transmission Date: 20210419
  Serious: No
  Sender: FDA-Public Use
  Company Number: US-EXELIXIS-CABO-20027341

PATIENT
  Age: 78 Year
  Sex: Male

DRUGS (2)
  1. CABOMETYX [Suspect]
     Active Substance: CABOZANTINIB S-MALATE
     Dosage: 40 MG, QOD
     Dates: start: 20200124, end: 20200321
  2. CABOMETYX [Suspect]
     Active Substance: CABOZANTINIB S-MALATE
     Indication: RENAL CELL CARCINOMA
     Dosage: 40 MG, QD
     Dates: start: 201912, end: 202001

REACTIONS (12)
  - Weight decreased [Recovered/Resolved]
  - Nausea [Recovered/Resolved]
  - Taste disorder [Recovering/Resolving]
  - Dry mouth [Recovering/Resolving]
  - Dizziness [Recovering/Resolving]
  - Fatigue [Recovering/Resolving]
  - Anaemia [Unknown]
  - Vomiting [Recovered/Resolved]
  - Hypotension [Recovered/Resolved]
  - Back pain [Recovering/Resolving]
  - Diarrhoea [Recovered/Resolved]
  - Decreased appetite [Recovering/Resolving]

NARRATIVE: CASE EVENT DATE: 201912
